FAERS Safety Report 5054069-4 (Version None)
Quarter: 2006Q3

REPORT INFORMATION
  Report Type: 
  Country: None (occurrence: None)
  Receive Date: 20060713
  Receipt Date: 20060418
  Transmission Date: 20061208
  Serious: No
  Sender: FDA-Public Use
  Company Number: 2006-141427-NL

PATIENT
  Sex: Female

DRUGS (1)
  1. MARVELON [Suspect]
     Dosage: DF
     Dates: start: 20051201

REACTIONS (1)
  - HEPATIC STEATOSIS [None]
